FAERS Safety Report 9645993 (Version 1)
Quarter: 2013Q4

REPORT INFORMATION
  Report Type: Spontaneous
  Country: ES (occurrence: ES)
  Receive Date: 20131025
  Receipt Date: 20131025
  Transmission Date: 20140711
  Serious: Yes (Hospitalization)
  Sender: FDA-Public Use
  Company Number: ES-GLAXOSMITHKLINE-B0932941A

PATIENT
  Age: 77 Year
  Sex: Female

DRUGS (5)
  1. ARIXTRA [Suspect]
     Indication: ACUTE MYOCARDIAL INFARCTION
     Dosage: 2.5MG PER DAY
     Route: 058
     Dates: start: 20120630, end: 20120630
  2. ADIRO [Suspect]
     Indication: ACUTE MYOCARDIAL INFARCTION
     Dosage: 250MG PER DAY
     Route: 048
     Dates: start: 20120630, end: 20120630
  3. NITROGLYCERINE [Concomitant]
     Indication: ACUTE MYOCARDIAL INFARCTION
     Route: 042
     Dates: start: 20120630, end: 20120630
  4. FUROSEMIDE [Concomitant]
     Route: 042
     Dates: start: 20120630, end: 20120630
  5. MORFINA [Concomitant]
     Indication: ACUTE MYOCARDIAL INFARCTION
     Route: 042
     Dates: start: 20120630, end: 20120630

REACTIONS (2)
  - Hypocoagulable state [Recovered/Resolved]
  - Drug interaction [Unknown]
